FAERS Safety Report 13295641 (Version 2)
Quarter: 2017Q1

REPORT INFORMATION
  Report Type: Report from Study
  Country: US (occurrence: US)
  Receive Date: 20170303
  Receipt Date: 20170330
  Transmission Date: 20170428
  Serious: Yes (Death, Hospitalization)
  Sender: FDA-Public Use
  Company Number: US-IPSEN-CABO-17007940

PATIENT
  Age: 68 Year
  Sex: Male

DRUGS (11)
  1. CABOMETYX [Suspect]
     Active Substance: CABOZANTINIB S-MALATE
     Indication: METASTASES TO PANCREAS
  2. CABOMETYX [Suspect]
     Active Substance: CABOZANTINIB S-MALATE
     Indication: METASTASES TO LUNG
  3. CABOMETYX [Suspect]
     Active Substance: CABOZANTINIB S-MALATE
     Indication: RENAL CANCER
     Dosage: 40 MG, QD
     Route: 048
     Dates: start: 20161217, end: 20161225
  4. LORATADINE. [Concomitant]
     Active Substance: LORATADINE
  5. CABOMETYX [Suspect]
     Active Substance: CABOZANTINIB S-MALATE
     Indication: METASTASES TO LYMPH NODES
  6. CALCIUM [Concomitant]
     Active Substance: CALCIUM
  7. CABOMETYX [Suspect]
     Active Substance: CABOZANTINIB S-MALATE
     Indication: METASTASES TO BONE
  8. HYDROCODONE [Concomitant]
     Active Substance: HYDROCODONE
  9. LORAZEPAM. [Concomitant]
     Active Substance: LORAZEPAM
  10. FENTANYL. [Concomitant]
     Active Substance: FENTANYL
  11. CABOMETYX [Suspect]
     Active Substance: CABOZANTINIB S-MALATE
     Indication: METASTASES TO LIVER

REACTIONS (2)
  - Malignant neoplasm progression [Fatal]
  - Thrombosis [Unknown]

NARRATIVE: CASE EVENT DATE: 20161225
